FAERS Safety Report 4607388-7 (Version None)
Quarter: 2005Q1

REPORT INFORMATION
  Report Type: 
  Country: None (occurrence: None)
  Receive Date: 20050311
  Receipt Date: 20050311
  Transmission Date: 20050727
  Serious: Yes (Hospitalization)
  Sender: FDA-Public Use
  Company Number: None

PATIENT
  Age: 49 Year
  Sex: Male
  Weight: 117.9352 kg

DRUGS (2)
  1. FUROSEMIDE 20MG [Suspect]
     Indication: CARDIAC FAILURE CONGESTIVE
     Dosage: 20MG PO DAILY
     Route: 048
  2. BUMETANIDE [Suspect]
     Indication: CARDIAC FAILURE CONGESTIVE
     Dosage: 1 MG PO BID
     Route: 048

REACTIONS (3)
  - DIZZINESS [None]
  - HYPOVOLAEMIA [None]
  - ORTHOSTATIC HYPOTENSION [None]
